FAERS Safety Report 24773907 (Version 1)
Quarter: 2024Q4

REPORT INFORMATION
  Report Type: Spontaneous
  Country: AU (occurrence: AU)
  Receive Date: 20241225
  Receipt Date: 20241225
  Transmission Date: 20250115
  Serious: Yes (Other)
  Sender: DR REDDYS
  Company Number: AU-DRL-SPO/AUS/24/0018863

PATIENT
  Age: 58 Year
  Sex: Male

DRUGS (16)
  1. ONDANSETRON [Suspect]
     Active Substance: ONDANSETRON
     Indication: Product used for unknown indication
     Route: 065
  2. TELMISARTAN [Suspect]
     Active Substance: TELMISARTAN
     Indication: Product used for unknown indication
     Route: 065
  3. PROCHLORPERAZINE [Suspect]
     Active Substance: PROCHLORPERAZINE
     Indication: Product used for unknown indication
     Route: 065
  4. LARODOPA [Suspect]
     Active Substance: LEVODOPA
     Indication: Product used for unknown indication
     Route: 065
  5. BENSERAZIDE\LEVODOPA [Suspect]
     Active Substance: BENSERAZIDE\LEVODOPA
     Indication: Product used for unknown indication
     Route: 065
  6. DAPAGLIFLOZIN PROPANEDIOL [Suspect]
     Active Substance: DAPAGLIFLOZIN PROPANEDIOL
     Indication: Product used for unknown indication
     Route: 065
  7. TENOFOVIR ALAFENAMIDE FUMARATE [Suspect]
     Active Substance: TENOFOVIR ALAFENAMIDE FUMARATE
     Indication: Product used for unknown indication
     Route: 065
  8. EMTRICITABINE [Suspect]
     Active Substance: EMTRICITABINE
     Indication: Product used for unknown indication
     Route: 065
  9. INSULIN GLARGINE [Concomitant]
     Active Substance: INSULIN GLARGINE
     Indication: Product used for unknown indication
     Route: 065
  10. ATORVASTATIN [Concomitant]
     Active Substance: ATORVASTATIN
     Indication: Product used for unknown indication
     Route: 065
  11. DIAZEPAM [Concomitant]
     Active Substance: DIAZEPAM
     Indication: Product used for unknown indication
     Route: 065
  12. FENOFIBRATE [Concomitant]
     Active Substance: FENOFIBRATE
     Indication: Product used for unknown indication
     Route: 065
  13. ACETAMINOPHEN [Concomitant]
     Active Substance: ACETAMINOPHEN
     Indication: Product used for unknown indication
     Route: 065
  14. QUETIAPINE FUMARATE [Concomitant]
     Active Substance: QUETIAPINE FUMARATE
     Indication: Product used for unknown indication
     Route: 065
  15. TEMAZEPAM [Concomitant]
     Active Substance: TEMAZEPAM
     Indication: Product used for unknown indication
     Route: 065
  16. TIOTROPIUM [Concomitant]
     Active Substance: TIOTROPIUM
     Indication: Product used for unknown indication
     Route: 065

REACTIONS (5)
  - Acute kidney injury [Unknown]
  - Nephropathy toxic [Unknown]
  - Constipation [Unknown]
  - Dehydration [Unknown]
  - Starvation ketoacidosis [Unknown]
